FAERS Safety Report 16780616 (Version 1)
Quarter: 2019Q3

REPORT INFORMATION
  Report Type: Spontaneous
  Country: US (occurrence: US)
  Receive Date: 20190906
  Receipt Date: 20190906
  Transmission Date: 20191005
  Serious: Yes (Other)
  Sender: FDA-Public Use
  Company Number: US-SA-2019SA248802

PATIENT
  Sex: Male

DRUGS (1)
  1. KEVZARA [Suspect]
     Active Substance: SARILUMAB
     Dosage: 200 MG
     Route: 058
     Dates: start: 201907, end: 201908

REACTIONS (4)
  - Respiratory tract infection [Unknown]
  - Condition aggravated [Unknown]
  - Sinusitis [Unknown]
  - Drug ineffective [Unknown]
